FAERS Safety Report 13466133 (Version 2)
Quarter: 2017Q2

REPORT INFORMATION
  Report Type: Spontaneous
  Country: US (occurrence: US)
  Receive Date: 20170421
  Receipt Date: 20170505
  Transmission Date: 20170830
  Serious: No
  Sender: FDA-Public Use
  Company Number: US-PFIZER INC-2017173232

PATIENT
  Age: 68 Year
  Sex: Female

DRUGS (3)
  1. IBRANCE [Suspect]
     Active Substance: PALBOCICLIB
     Dosage: 100 MG, UNK
     Dates: start: 20170413
  2. LETROZOLE. [Suspect]
     Active Substance: LETROZOLE
     Dosage: UNK
  3. IBRANCE [Suspect]
     Active Substance: PALBOCICLIB
     Dosage: 125 MG, CYCLIC (ONE TABLET EVERY DAY FOR 21 DAYS THEN OFF FOR 7)
     Dates: start: 20170403

REACTIONS (6)
  - Dizziness [Unknown]
  - Fatigue [Unknown]
  - Lip dry [Unknown]
  - Disorientation [Unknown]
  - Feeling abnormal [Unknown]
  - Musculoskeletal pain [Unknown]
